FAERS Safety Report 7188044-0 (Version None)
Quarter: 2010Q4

REPORT INFORMATION
  Report Type: 
  Country: None (occurrence: None)
  Receive Date: 20101222
  Receipt Date: 20100713
  Transmission Date: 20110411
  Serious: No
  Sender: FDA-Public Use
  Company Number: US-AMGEN-KDL424216

PATIENT

DRUGS (2)
  1. ENBREL [Suspect]
     Indication: RHEUMATOID ARTHRITIS
     Dosage: 25 MG, QWK
     Dates: start: 20100616
  2. DIAZEPAM [Concomitant]
     Dosage: 10 MG, UNK
     Dates: start: 20100101

REACTIONS (3)
  - BLOOD PRESSURE INCREASED [None]
  - KIDNEY INFECTION [None]
  - SPINAL OPERATION [None]
